FAERS Safety Report 24558012 (Version 1)
Quarter: 2024Q4

REPORT INFORMATION
  Report Type: Spontaneous
  Country: CN (occurrence: CN)
  Receive Date: 20241028
  Receipt Date: 20241028
  Transmission Date: 20250115
  Serious: Yes (Hospitalization)
  Sender: INCYTE
  Company Number: CN-002147023-NVSC2024CN208055

PATIENT

DRUGS (8)
  1. RUXOLITINIB [Suspect]
     Active Substance: RUXOLITINIB
     Indication: Haemophagocytic lymphohistiocytosis
     Dosage: 5.000 MG, BID
     Route: 048
     Dates: start: 20240917, end: 20240927
  2. ETOPOSIDE [Suspect]
     Active Substance: ETOPOSIDE
     Indication: Haemophagocytic lymphohistiocytosis
     Dosage: 3.100 ML, BIW PUMP INJECTION (PUMP SPEED: 70ML/H)
     Route: 042
     Dates: start: 20240916
  3. ETOPOSIDE [Suspect]
     Active Substance: ETOPOSIDE
     Dosage: 3.100 ML, BIW PUMP INJECTION
     Route: 042
     Dates: start: 20240919
  4. ETOPOSIDE [Suspect]
     Active Substance: ETOPOSIDE
     Dosage: 3.100 ML, BIW PUMP INJECTION
     Route: 042
     Dates: start: 20240923
  5. FLUCONAZOLE [Concomitant]
     Active Substance: FLUCONAZOLE
     Indication: Fungal infection
     Dosage: 42.000 ML, QD PUMP INJECTION (PUMP SPEED: 40ML/H)
     Route: 042
     Dates: start: 20240916, end: 20241003
  6. SODIUM CHLORIDE [Concomitant]
     Active Substance: SODIUM CHLORIDE
     Indication: Vehicle solution use
     Dosage: 250.000 ML, BIW (PUMP INJECTION) (INTRAVENOUS USE)
     Route: 042
     Dates: start: 20240916
  7. SODIUM CHLORIDE [Concomitant]
     Active Substance: SODIUM CHLORIDE
     Dosage: 250.000 ML, BIW (PUMP INJECTION) (INTRAVENOUS USE)
     Route: 042
     Dates: start: 20240919
  8. SODIUM CHLORIDE [Concomitant]
     Active Substance: SODIUM CHLORIDE
     Dosage: 250.000 ML, BIW (PUMP INJECTION) (INTRAVENOUS USE)
     Route: 042
     Dates: start: 20240923

REACTIONS (2)
  - Pallor [Unknown]
  - Platelet count decreased [Recovering/Resolving]

NARRATIVE: CASE EVENT DATE: 20240918
